FAERS Safety Report 7351965-X (Version None)
Quarter: 2011Q1

REPORT INFORMATION
  Report Type: 
  Country: None (occurrence: None)
  Receive Date: 20110315
  Receipt Date: 20110309
  Transmission Date: 20110831
  Serious: No
  Sender: FDA-Public Use
  Company Number: US-PFIZER INC-2011052838

PATIENT
  Sex: Male
  Weight: 84.807 kg

DRUGS (3)
  1. GEODON [Suspect]
     Dosage: 60 MG, 2X/DAY
     Dates: start: 20110201
  2. ZOLOFT [Concomitant]
     Indication: DEPRESSION
     Dosage: 150 MG, 1X/DAY
     Route: 048
  3. GEODON [Suspect]
     Indication: SCHIZOAFFECTIVE DISORDER
     Dosage: 60 MG, 1X/DAY
     Route: 048
     Dates: start: 20110211

REACTIONS (1)
  - ANXIETY [None]
